FAERS Safety Report 13382962 (Version 1)
Quarter: 2017Q1

REPORT INFORMATION
  Report Type: Spontaneous
  Country: BR (occurrence: BR)
  Receive Date: 20170329
  Receipt Date: 20170329
  Transmission Date: 20170429
  Serious: Yes (Other)
  Sender: FDA-Public Use
  Company Number: BR-009507513-1703BRA011959

PATIENT
  Sex: Female

DRUGS (2)
  1. AZUKON MR [Suspect]
     Active Substance: GLICLAZIDE
     Dosage: UNK
  2. NIMEGON MET [Suspect]
     Active Substance: METFORMIN HYDROCHLORIDE\SITAGLIPTIN PHOSPHATE
     Route: 048

REACTIONS (2)
  - Blindness [Recovered/Resolved]
  - Vision blurred [Recovered/Resolved]
